FAERS Safety Report 7787234-3 (Version None)
Quarter: 2011Q3

REPORT INFORMATION
  Report Type: 
  Country: None (occurrence: None)
  Receive Date: 20110929
  Receipt Date: 20110606
  Transmission Date: 20111222
  Serious: Yes (Hospitalization)
  Sender: FDA-Public Use
  Company Number: US-ACTELION-A-US2011-49942

PATIENT

DRUGS (6)
  1. EPOPROSTENOL SODIUM [Suspect]
     Dosage: 22.5 NG/KG, PER MIN
     Route: 042
  2. EPOPROSTENOL SODIUM [Suspect]
     Indication: PULMONARY ARTERIAL HYPERTENSION
     Dosage: 17 NG/KG, PER MIN
     Route: 042
     Dates: start: 20110124
  3. TRACLEER [Suspect]
     Indication: PULMONARY ARTERIAL HYPERTENSION
     Dosage: UNK
     Route: 048
     Dates: start: 20020115
  4. OXYGEN [Concomitant]
  5. SILDENAFIL CITRATE [Concomitant]
  6. ASPIRIN [Concomitant]

REACTIONS (3)
  - DEVICE LEAKAGE [None]
  - DEVICE RELATED INFECTION [None]
  - MENTAL DISORDER [None]
